FAERS Safety Report 6759416-0 (Version None)
Quarter: 2010Q2

REPORT INFORMATION
  Report Type: 
  Country: None (occurrence: None)
  Receive Date: 20100603
  Receipt Date: 20100518
  Transmission Date: 20101027
  Serious: Yes (Death, Hospitalization, Other)
  Sender: FDA-Public Use
  Company Number: A-US2010-35062

PATIENT
  Age: 59 Year
  Sex: Female

DRUGS (1)
  1. TRACLEER [Suspect]
     Indication: PULMONARY ARTERIAL HYPERTENSION
     Dosage: ORAL
     Route: 048
     Dates: end: 20100317

REACTIONS (8)
  - DEEP VEIN THROMBOSIS [None]
  - HYPOXIA [None]
  - LOBAR PNEUMONIA [None]
  - NON-SMALL CELL LUNG CANCER STAGE IIIB [None]
  - RENAL IMPAIRMENT [None]
  - RESPIRATORY DISTRESS [None]
  - SEPTIC SHOCK [None]
  - URINE OUTPUT DECREASED [None]
